FAERS Safety Report 11694446 (Version 1)
Quarter: 2015Q4

REPORT INFORMATION
  Report Type: Spontaneous
  Country: US (occurrence: US)
  Receive Date: 20151103
  Receipt Date: 20151103
  Transmission Date: 20160304
  Serious: No
  Sender: FDA-Public Use
  Company Number: US-AKRIMAX-TIR-04809

PATIENT
  Age: 31 Year
  Sex: Female

DRUGS (2)
  1. VITAMINS WITH IODINE [Concomitant]
     Indication: PRODUCT USED FOR UNKNOWN INDICATION
     Dosage: DAILY
  2. TIROSINT [Suspect]
     Active Substance: LEVOTHYROXINE SODIUM
     Indication: HYPOTHYROIDISM
     Dosage: 150MCG DAILY
     Route: 048
     Dates: start: 201501

REACTIONS (1)
  - Thyroid function test abnormal [Unknown]
